FAERS Safety Report 5237566-8 (Version None)
Quarter: 2007Q1

REPORT INFORMATION
  Report Type: 
  Country: None (occurrence: None)
  Receive Date: 20070213
  Receipt Date: 20070201
  Transmission Date: 20070707
  Serious: Yes (Other)
  Sender: FDA-Public Use
  Company Number: DE-PFIZER INC-2007009298

PATIENT
  Sex: Male

DRUGS (3)
  1. SUTENT [Suspect]
     Indication: METASTATIC RENAL CELL CARCINOMA
     Dosage: DAILY DOSE:50MG
     Route: 048
  2. ALLOPURINOL SODIUM [Suspect]
     Indication: GOUT
     Dosage: DAILY DOSE:300MG
     Route: 048
     Dates: start: 20060901, end: 20061201
  3. PARACETAMOL [Concomitant]

REACTIONS (2)
  - DERMATITIS EXFOLIATIVE [None]
  - NAUSEA [None]
